FAERS Safety Report 11942253 (Version 1)
Quarter: 2016Q1

REPORT INFORMATION
  Report Type: Report from Study
  Country: AT (occurrence: AT)
  Receive Date: 20160125
  Receipt Date: 20160125
  Transmission Date: 20160526
  Serious: Yes (Hospitalization)
  Sender: FDA-Public Use
  Company Number: AT-ROCHE-1679284

PATIENT
  Age: 85 Year
  Sex: Female
  Weight: 60 kg

DRUGS (29)
  1. CANDESARTAN CILEXETIL AND HYDROCHLOROTHIAZIDE [Concomitant]
     Active Substance: CANDESARTAN CILEXETIL\HYDROCHLOROTHIAZIDE
     Indication: ESSENTIAL HYPERTENSION
     Route: 065
     Dates: start: 201501, end: 201502
  2. CIPROXIN [Concomitant]
     Active Substance: CIPROFLOXACIN
     Indication: URINARY TRACT INFECTION
     Dosage: 1-0-1 (NETRITE NEGATIVE)
     Route: 065
     Dates: start: 201507, end: 201507
  3. XARELTO [Concomitant]
     Active Substance: RIVAROXABAN
     Dosage: INDICATION: CARDIAC PROTECTION; 0-1-0
     Route: 065
     Dates: start: 201510
  4. SEDACORON [Concomitant]
     Active Substance: AMIODARONE HYDROCHLORIDE
     Route: 065
     Dates: start: 201501, end: 201502
  5. IRENAT [Concomitant]
     Active Substance: POTASSIUM PERCHLORATE
     Route: 065
     Dates: start: 201504, end: 201505
  6. GABAPENTIN. [Concomitant]
     Active Substance: GABAPENTIN
     Indication: PARAESTHESIA
     Route: 065
     Dates: start: 201507
  7. LOVENOX [Concomitant]
     Active Substance: ENOXAPARIN SODIUM
     Indication: TRANSIENT ISCHAEMIC ATTACK
     Dosage: INDICATION: VENOUS THROMBOSIS PROPHYLAXIS
     Route: 058
     Dates: start: 201507, end: 201510
  8. CONCOR [Concomitant]
     Active Substance: BISOPROLOL FUMARATE
     Dosage: INDICATION: TACHYCARDIC ATRIAL FLUTTER; 1-0-1
     Route: 065
     Dates: start: 201510, end: 201510
  9. SEDACORON [Concomitant]
     Active Substance: AMIODARONE HYDROCHLORIDE
     Dosage: INDICATION: INSTABLE ATRIUM AND TACHHYCARDIA 1-0-0
     Route: 042
     Dates: start: 20151212
  10. ARIXTRA [Concomitant]
     Active Substance: FONDAPARINUX SODIUM
     Dosage: INDICATION: VENOUS THROMBOSIS PROPHYLAXIS
     Route: 058
     Dates: start: 201502, end: 201507
  11. GRANISETRON [Concomitant]
     Active Substance: GRANISETRON
     Indication: VOMITING
     Dosage: 3-5 DAYS AFTER CHEMOTHERAPY; 1-0-0
     Route: 065
     Dates: start: 201503, end: 201506
  12. CIPROXIN [Concomitant]
     Active Substance: CIPROFLOXACIN
     Route: 065
     Dates: start: 201510, end: 201510
  13. PACLITAXEL. [Suspect]
     Active Substance: PACLITAXEL
     Indication: PRODUCT USED FOR UNKNOWN INDICATION
     Dosage: 6 CYCLES
     Route: 065
     Dates: start: 20150123, end: 20150603
  14. CANDESARTAN CILEXETIL AND HYDROCHLOROTHIAZIDE [Concomitant]
     Active Substance: CANDESARTAN CILEXETIL\HYDROCHLOROTHIAZIDE
     Route: 065
     Dates: start: 201502, end: 201507
  15. IRENAT [Concomitant]
     Active Substance: POTASSIUM PERCHLORATE
     Indication: HYPERTHYROIDISM
     Route: 065
     Dates: start: 201502, end: 201504
  16. DIFLUCAN [Concomitant]
     Active Substance: FLUCONAZOLE
     Indication: URINARY TRACT INFECTION
     Route: 065
     Dates: start: 201510, end: 201510
  17. MEXALEN [Concomitant]
     Active Substance: ACETAMINOPHEN
     Indication: PAIN
     Route: 065
     Dates: start: 201510
  18. CARBOPLATIN. [Suspect]
     Active Substance: CARBOPLATIN
     Indication: PRODUCT USED FOR UNKNOWN INDICATION
     Dosage: 6 CYCLES
     Route: 065
     Dates: start: 20150123, end: 20150603
  19. CANDESARTAN CILEXETIL AND HYDROCHLOROTHIAZIDE [Concomitant]
     Active Substance: CANDESARTAN CILEXETIL\HYDROCHLOROTHIAZIDE
     Route: 065
     Dates: start: 201507
  20. VANCOMYCIN [Concomitant]
     Active Substance: VANCOMYCIN
     Indication: URINARY TRACT INFECTION
     Route: 042
     Dates: start: 201510, end: 201510
  21. THROMBO ASS [Concomitant]
     Active Substance: ASPIRIN
     Dosage: INDICATION: TACHYCARDIC ATRIAL FIBRILLATION, LATER ATRIAL FLUTTER; 0-1-0
     Route: 065
     Dates: start: 201510
  22. SEDACORON [Concomitant]
     Active Substance: AMIODARONE HYDROCHLORIDE
     Indication: ATRIAL FIBRILLATION
     Dosage: INDICATION: TACHYCARDIC ATRIAL FIBRILLATION
     Route: 042
     Dates: start: 201510, end: 201510
  23. IRENAT [Concomitant]
     Active Substance: POTASSIUM PERCHLORATE
     Route: 065
     Dates: start: 201505, end: 201506
  24. EMEND [Concomitant]
     Active Substance: APREPITANT
     Indication: PROPHYLAXIS OF NAUSEA AND VOMITING
     Dosage: 2 DAYS AFTER CHEMOTHERAPY
     Route: 065
     Dates: start: 201504, end: 201505
  25. ZOLDEM [Concomitant]
     Active Substance: ZOLPIDEM TARTRATE
     Indication: INSOMNIA
     Route: 065
     Dates: start: 201507, end: 201510
  26. BEVACIZUMAB [Suspect]
     Active Substance: BEVACIZUMAB
     Indication: OVARIAN CANCER METASTATIC
     Dosage: 7 CYCLES
     Route: 065
     Dates: start: 20150422, end: 20151006
  27. LOVENOX [Concomitant]
     Active Substance: ENOXAPARIN SODIUM
     Route: 058
     Dates: start: 20151221
  28. CALCIUM GLYCEROPHOSPHATE\CELLULOSE\POLYETHYLENE GLYCOL\SACCHARIN SODIUM\SODIUM HYDROXIDE\SODIUM LAURYL SULFATE\SODIUM MAGNESIUM SILICATE\SODIUM MONOFLUOROPHOSPHATE\SORBITOL\WATER [Concomitant]
     Active Substance: CALCIUM GLYCEROPHOSPHATE\POLYETHYLENE GLYCOLS\POWDERED CELLULOSE\SACCHARIN SODIUM DIHYDRATE\SODIUM HYDROXIDE\SODIUM LAURYL SULFATE\SODIUM MAGNESIUM SILICATE\SODIUM MONOFLUOROPHOSPHATE\SORBITOL\WATER
     Indication: CONSTIPATION
     Route: 065
     Dates: start: 201501, end: 201507
  29. EMEND [Concomitant]
     Active Substance: APREPITANT
     Indication: NAUSEA
     Dosage: 2 DAYS AFTER CHEMOTHERAPY; 1-0-0
     Route: 065
     Dates: start: 201506, end: 201506

REACTIONS (3)
  - Transient ischaemic attack [Recovered/Resolved]
  - Arrhythmia supraventricular [Recovered/Resolved]
  - Embolism [Recovered/Resolved]

NARRATIVE: CASE EVENT DATE: 20151212
